FAERS Safety Report 4961238-8 (Version None)
Quarter: 2006Q2

REPORT INFORMATION
  Report Type: 
  Country: None (occurrence: None)
  Receive Date: 20060403
  Receipt Date: 20060220
  Transmission Date: 20061013
  Serious: Yes (Other)
  Sender: FDA-Public Use
  Company Number: DE-ABBOTT-06P-062-0325532-00

PATIENT
  Sex: Male

DRUGS (2)
  1. ERGENYL CHRONO TABLETS [Suspect]
     Indication: EPILEPSY
     Route: 048
     Dates: start: 19880101, end: 20000101
  2. ERGENYL CHRONO TABLETS [Suspect]
     Dates: start: 19880101, end: 20000101

REACTIONS (4)
  - CHEST PAIN [None]
  - OSTEOPOROSIS [None]
  - PLEURISY [None]
  - SPINAL FRACTURE [None]
